FAERS Safety Report 20077985 (Version 2)
Quarter: 2021Q4

REPORT INFORMATION
  Report Type: Spontaneous
  Country: CH (occurrence: CH)
  Receive Date: 20211117
  Receipt Date: 20211126
  Transmission Date: 20220303
  Serious: Yes (Hospitalization, Other)
  Sender: FDA-Public Use
  Company Number: CH-ABBVIE-21K-151-4161584-00

PATIENT
  Age: 45 Year
  Sex: Male
  Weight: 79 kg

DRUGS (9)
  1. HUMIRA [Suspect]
     Active Substance: ADALIMUMAB
     Indication: Psoriasis
     Dosage: 40 MG/0.4 ML
     Route: 058
     Dates: start: 20130408, end: 20200614
  2. HUMIRA [Suspect]
     Active Substance: ADALIMUMAB
     Indication: Psoriatic arthropathy
     Dosage: 40 MG/0.4 ML
     Route: 058
     Dates: start: 20200719
  3. HUMIRA [Suspect]
     Active Substance: ADALIMUMAB
     Dosage: 40 MG/0.4 ML
     Route: 058
     Dates: end: 20211118
  4. CO VALSARTAN [Concomitant]
     Indication: Hypertension
     Dosage: 160/12.5 MG
     Route: 048
  5. PANTOPRAZOLE SODIUM [Concomitant]
     Active Substance: PANTOPRAZOLE SODIUM
     Indication: Dyspepsia
     Dates: end: 20211101
  6. NATRII PICOSULFAS MONOHYDRICUM [Concomitant]
     Indication: Constipation
     Dosage: MAX 1 X D, IF NEEDED
     Route: 048
     Dates: start: 20200922
  7. MAGNESIUM HYDROXIDE [Concomitant]
     Active Substance: MAGNESIUM HYDROXIDE
     Indication: Product used for unknown indication
     Dosage: 1 MEASURING SPOON?MAX 1 X D, RESERVE
  8. PANTOPRAZOLE [Concomitant]
     Active Substance: PANTOPRAZOLE
     Indication: Product used for unknown indication
     Dosage: ONCE IN THE MORNING AND EVENING
     Dates: end: 20211101
  9. ALUMINUM HYDROXIDE\MAGNESIUM HYDROXIDE [Concomitant]
     Active Substance: ALUMINUM HYDROXIDE\MAGNESIUM HYDROXIDE
     Indication: Product used for unknown indication
     Dosage: IF NEEDED /MAX. 4/DAY
     Dates: start: 202110

REACTIONS (16)
  - Obstructive pancreatitis [Recovered/Resolved]
  - Ulcer [Unknown]
  - General physical health deterioration [Recovered/Resolved]
  - Cholelithiasis [Unknown]
  - Abdominal pain upper [Recovered/Resolved]
  - Pain [Recovered/Resolved]
  - Cholelithiasis [Recovered/Resolved]
  - Pancreatic enzymes increased [Recovering/Resolving]
  - Lipase increased [Recovering/Resolving]
  - Liver function test increased [Recovering/Resolving]
  - Liver function test increased [Recovering/Resolving]
  - Diaphragmatic disorder [Unknown]
  - Dyspepsia [Unknown]
  - Haemoglobin decreased [Unknown]
  - Abdominal pain upper [Recovered/Resolved]
  - Vomiting [Unknown]

NARRATIVE: CASE EVENT DATE: 20211001
